FAERS Safety Report 7887895-4 (Version None)
Quarter: 2011Q4

REPORT INFORMATION
  Report Type: 
  Country: None (occurrence: None)
  Receive Date: 20111103
  Receipt Date: 20111103
  Transmission Date: 20120403
  Serious: No
  Sender: FDA-Public Use
  Company Number: None

PATIENT
  Age: 61 Year
  Sex: Female
  Weight: 105.23 kg

DRUGS (3)
  1. ANECTINE [Suspect]
     Indication: SURGERY
     Dates: start: 20111026, end: 20111026
  2. ANECTINE [Suspect]
     Indication: ANAESTHESIA
     Dates: start: 20111026, end: 20111026
  3. ANECTINE [Suspect]
     Indication: ENDOTRACHEAL INTUBATION
     Dates: start: 20111026, end: 20111026

REACTIONS (3)
  - MOVEMENT DISORDER [None]
  - MYALGIA [None]
  - PAIN IN JAW [None]
